FAERS Safety Report 6679515-1 (Version None)
Quarter: 2010Q2

REPORT INFORMATION
  Report Type: 
  Country: None (occurrence: None)
  Receive Date: 20100413
  Receipt Date: 20100406
  Transmission Date: 20101027
  Serious: Yes (Hospitalization)
  Sender: FDA-Public Use
  Company Number: B0634912A

PATIENT
  Sex: Female
  Weight: 87 kg

DRUGS (5)
  1. ALLI [Suspect]
     Dosage: 60MG UNKNOWN
     Route: 065
     Dates: start: 20090501, end: 20090502
  2. LAMOTRIGINE [Concomitant]
     Indication: EPILEPSY
     Route: 065
     Dates: start: 20080602
  3. ZOLPIDEM [Concomitant]
     Indication: INSOMNIA
     Route: 065
     Dates: start: 20080602
  4. STABLON [Concomitant]
     Indication: DRUG USE FOR UNKNOWN INDICATION
     Route: 065
  5. STRESAM [Concomitant]
     Indication: DRUG USE FOR UNKNOWN INDICATION
     Route: 065

REACTIONS (3)
  - AMNESIA [None]
  - EPILEPSY [None]
  - SYNCOPE [None]
